FAERS Safety Report 17810605 (Version 1)
Quarter: 2020Q2

REPORT INFORMATION
  Report Type: Spontaneous
  Country: CN (occurrence: CN)
  Receive Date: 20200521
  Receipt Date: 20200521
  Transmission Date: 20200714
  Serious: Yes (Other)
  Sender: FDA-Public Use
  Company Number: NVSC2020CN136781

PATIENT

DRUGS (5)
  1. GEMCITABINE. [Suspect]
     Active Substance: GEMCITABINE
     Indication: ANGIOCENTRIC LYMPHOMA
     Dosage: 1 G/M2, ON DAY 1
     Route: 042
  2. CISPLATIN. [Suspect]
     Active Substance: CISPLATIN
     Indication: ANGIOCENTRIC LYMPHOMA
     Dosage: 75 MG/M2, ON DAY 1
     Route: 042
  3. DEXAMETHASONE. [Suspect]
     Active Substance: DEXAMETHASONE
     Indication: ANGIOCENTRIC LYMPHOMA
     Dosage: 40 MG, QD, ON DAYS 1?4
     Route: 042
  4. PEGASPARGASE [Suspect]
     Active Substance: PEGASPARGASE
     Indication: ANGIOCENTRIC LYMPHOMA
     Dosage: 3750 U,  ON DAY 5
     Route: 058
  5. METHOTREXATE. [Suspect]
     Active Substance: METHOTREXATE
     Indication: ANGIOCENTRIC LYMPHOMA
     Dosage: 1 G/M2, Q4H, ON DAY 2
     Route: 042

REACTIONS (4)
  - Product use in unapproved indication [Unknown]
  - Nausea [Unknown]
  - Vomiting [Unknown]
  - Diarrhoea [Unknown]
